FAERS Safety Report 8959151 (Version 1)
Quarter: 2012Q4

REPORT INFORMATION
  Report Type: Spontaneous
  Country: US (occurrence: None)
  Receive Date: 20121128
  Receipt Date: 20121128
  Transmission Date: 20130627
  Serious: Yes (Hospitalization, Other)
  Sender: FDA-Public Use
  Company Number: INT_00154_2012

PATIENT
  Age: 46 Year
  Sex: Male

DRUGS (1)
  1. IMIPENEM [Suspect]
     Indication: PNEUMONIA

REACTIONS (1)
  - Loeffler^s syndrome [None]
